FAERS Safety Report 13763112 (Version 1)
Quarter: 2017Q3

REPORT INFORMATION
  Report Type: Spontaneous
  Country: NL (occurrence: NL)
  Receive Date: 20170718
  Receipt Date: 20170718
  Transmission Date: 20171127
  Serious: Yes (Other)
  Sender: FDA-Public Use
  Company Number: NL-009507513-1707NLD005331

PATIENT
  Age: 29 Year
  Sex: Female
  Weight: 58 kg

DRUGS (1)
  1. IMPLANON [Suspect]
     Active Substance: ETONOGESTREL
     Dosage: GEREGULEERDE AFGIFTE
     Route: 058
     Dates: start: 20170202, end: 20170609

REACTIONS (5)
  - Suicidal ideation [Recovered/Resolved]
  - Mood swings [Recovered/Resolved]
  - Headache [Recovered/Resolved]
  - Fibroadenoma of breast [Recovered/Resolved with Sequelae]
  - Weight increased [Recovered/Resolved]

NARRATIVE: CASE EVENT DATE: 20170301
